FAERS Safety Report 11767255 (Version 4)
Quarter: 2016Q1

REPORT INFORMATION
  Report Type: Spontaneous
  Country: US (occurrence: US)
  Receive Date: 20151123
  Receipt Date: 20160317
  Transmission Date: 20160525
  Serious: No
  Sender: FDA-Public Use
  Company Number: US-PFIZER INC-2015378372

PATIENT
  Age: 88 Year
  Sex: Female
  Weight: 73 kg

DRUGS (4)
  1. ADVIL [Suspect]
     Active Substance: IBUPROFEN
     Indication: SLEEP DISORDER
  2. ADVIL [Suspect]
     Active Substance: IBUPROFEN
     Indication: HEADACHE
  3. ADVIL [Suspect]
     Active Substance: IBUPROFEN
     Indication: PAIN
     Dosage: 2 DF, 1X/DAY (2 BEFORE BED TIME )
  4. ADVIL [Suspect]
     Active Substance: IBUPROFEN
     Indication: BACK PAIN

REACTIONS (8)
  - Flatulence [Unknown]
  - Anxiety [Unknown]
  - Product colour issue [Unknown]
  - Product quality issue [Unknown]
  - Chest discomfort [Unknown]
  - Cardiac disorder [Unknown]
  - Product use issue [Unknown]
  - Dysphagia [Unknown]
